FAERS Safety Report 4930734-1 (Version None)
Quarter: 2006Q1

REPORT INFORMATION
  Report Type: 
  Country: None (occurrence: None)
  Receive Date: 20060227
  Receipt Date: 20060214
  Transmission Date: 20060701
  Serious: Yes (Other)
  Sender: FDA-Public Use
  Company Number: 2006022128

PATIENT
  Sex: Male
  Weight: 115.6672 kg

DRUGS (5)
  1. CELEBREX [Suspect]
     Indication: RHEUMATOID ARTHRITIS
     Dosage: 100 MG (100 MG,1 IN 1 D)
  2. MAXZIDE [Concomitant]
  3. NEXIUM [Concomitant]
  4. RANITIDINE [Concomitant]
  5. ASPIRIN [Concomitant]

REACTIONS (7)
  - DRUG INEFFECTIVE [None]
  - MALAISE [None]
  - NERVE COMPRESSION [None]
  - NEURITIS [None]
  - OSTEOARTHRITIS [None]
  - PAIN [None]
  - RHEUMATOID ARTHRITIS [None]
